FAERS Safety Report 23509959 (Version 2)
Quarter: 2024Q1

REPORT INFORMATION
  Report Type: Spontaneous
  Country: GB (occurrence: GB)
  Receive Date: 20240211
  Receipt Date: 20240219
  Transmission Date: 20240410
  Serious: Yes (Hospitalization, Other)
  Sender: FDA-Public Use
  Company Number: GB-SA-SAC20240207000289

PATIENT
  Age: 69 Year
  Sex: Female

DRUGS (1)
  1. AUBAGIO [Suspect]
     Active Substance: TERIFLUNOMIDE
     Indication: Multiple sclerosis
     Dosage: 14 MG, QD
     Route: 048
     Dates: end: 2023

REACTIONS (2)
  - Cholelithiasis [Unknown]
  - Colitis [Unknown]

NARRATIVE: CASE EVENT DATE: 20230101
